FAERS Safety Report 5748760-1 (Version None)
Quarter: 2008Q2

REPORT INFORMATION
  Report Type: 
  Country: None (occurrence: None)
  Receive Date: 20080521
  Receipt Date: 20080506
  Transmission Date: 20081010
  Serious: Yes (Other)
  Sender: FDA-Public Use
  Company Number: 8029463

PATIENT
  Age: 70 Year
  Sex: Female

DRUGS (3)
  1. XYZAL [Suspect]
     Dosage: PO
     Route: 048
  2. ATACAND [Concomitant]
  3. UNSPECIFIED MEDICATIONS [Concomitant]

REACTIONS (1)
  - ELECTROCARDIOGRAM QT PROLONGED [None]
